FAERS Safety Report 4389142-7 (Version None)
Quarter: 2004Q3

REPORT INFORMATION
  Report Type: 
  Country: None (occurrence: None)
  Receive Date: 20040702
  Receipt Date: 20040106
  Transmission Date: 20050211
  Serious: No
  Sender: FDA-Public Use
  Company Number: US-GLAXOSMITHKLINE-A0491736A

PATIENT

DRUGS (1)
  1. PARNATE [Suspect]
     Route: 048

REACTIONS (1)
  - DRUG INEFFECTIVE [None]
